FAERS Safety Report 24642283 (Version 1)
Quarter: 2024Q4

REPORT INFORMATION
  Report Type: Spontaneous
  Country: CN (occurrence: CN)
  Receive Date: 20241120
  Receipt Date: 20241120
  Transmission Date: 20250115
  Serious: Yes (Other)
  Sender: BAXTER
  Company Number: None

PATIENT
  Age: 68 Year
  Sex: Female
  Weight: 55 kg

DRUGS (3)
  1. CYCLOPHOSPHAMIDE [Suspect]
     Active Substance: CYCLOPHOSPHAMIDE
     Indication: Breast cancer female
     Dosage: 0.9G, ONE TIME IN 1 DAY
     Route: 041
     Dates: start: 20241029, end: 20241029
  2. CYCLOPHOSPHAMIDE [Suspect]
     Active Substance: CYCLOPHOSPHAMIDE
     Indication: Chemotherapy
  3. SODIUM CHLORIDE [Suspect]
     Active Substance: SODIUM CHLORIDE
     Indication: Medication dilution
     Dosage: 250ML, ONE TIME IN 1 DAY-INJECTION
     Route: 041
     Dates: start: 20241029, end: 20241029

REACTIONS (4)
  - Breast cancer female [Recovering/Resolving]
  - Nausea [Unknown]
  - Vomiting [Unknown]
  - Decreased appetite [Unknown]

NARRATIVE: CASE EVENT DATE: 20241029
